FAERS Safety Report 7997219-X (Version None)
Quarter: 2011Q4

REPORT INFORMATION
  Report Type: 
  Country: None (occurrence: None)
  Receive Date: 20111221
  Receipt Date: 20111215
  Transmission Date: 20120403
  Serious: Yes (Other)
  Sender: FDA-Public Use
  Company Number: DE-SANOFI-AVENTIS-2011SA082390

PATIENT
  Sex: Male

DRUGS (2)
  1. MULTAQ [Suspect]
     Route: 048
  2. MULTAQ [Suspect]
     Route: 048

REACTIONS (2)
  - HEART RATE DECREASED [None]
  - ATRIAL FIBRILLATION [None]
